FAERS Safety Report 19443688 (Version 1)
Quarter: 2021Q2

REPORT INFORMATION
  Report Type: Spontaneous
  Country: DE (occurrence: DE)
  Receive Date: 20210621
  Receipt Date: 20210621
  Transmission Date: 20210717
  Serious: Yes (Other)
  Sender: FDA-Public Use
  Company Number: DE-PFIZER INC-2021688683

PATIENT
  Age: 40 Year
  Sex: Male

DRUGS (1)
  1. XALKORI [Suspect]
     Active Substance: CRIZOTINIB
     Indication: BRONCHIAL CARCINOMA
     Dosage: SINCE MORE THAN ONE YEAR

REACTIONS (2)
  - Large intestinal ulcer [Unknown]
  - Gastrointestinal haemorrhage [Unknown]
